FAERS Safety Report 9200498 (Version 5)
Quarter: 2014Q1

REPORT INFORMATION
  Report Type: Spontaneous
  Country: US (occurrence: US)
  Receive Date: 20130329
  Receipt Date: 20140328
  Transmission Date: 20141002
  Serious: Yes (Hospitalization)
  Sender: FDA-Public Use
  Company Number: US-009507513-1303USA014392

PATIENT
  Sex: Male

DRUGS (3)
  1. PROPECIA [Suspect]
     Dosage: 1 MG, UNK
     Route: 048
     Dates: start: 20000612
  2. PROPECIA [Suspect]
     Dosage: 1 MG, QD
     Route: 048
     Dates: start: 20010511, end: 20090727
  3. PROPECIA [Suspect]
     Indication: ANDROGENETIC ALOPECIA
     Dosage: 1 MG, UNK
     Route: 048
     Dates: start: 1995, end: 1999

REACTIONS (22)
  - Hypoaesthesia [Unknown]
  - Paraesthesia [Unknown]
  - Nervous system disorder [Unknown]
  - Transient ischaemic attack [Unknown]
  - Cognitive disorder [Not Recovered/Not Resolved]
  - Blood cholesterol increased [Unknown]
  - Melanocytic naevus [Unknown]
  - Intertrigo candida [Recovered/Resolved]
  - Skin disorder [Unknown]
  - Skin papilloma [Unknown]
  - Cryotherapy [Unknown]
  - Sinus headache [Not Recovered/Not Resolved]
  - Sinusitis [Not Recovered/Not Resolved]
  - Nausea [Unknown]
  - Electrocardiogram T wave amplitude decreased [Unknown]
  - Skin papilloma [Unknown]
  - Skin papilloma [Unknown]
  - Sexual dysfunction [Not Recovered/Not Resolved]
  - Erectile dysfunction [Unknown]
  - Infertility [Unknown]
  - Semen analysis abnormal [Unknown]
  - Chest pain [Unknown]
